FAERS Safety Report 4717287-8 (Version None)
Quarter: 2005Q3

REPORT INFORMATION
  Report Type: 
  Country: None (occurrence: None)
  Receive Date: 20050715
  Receipt Date: 20050705
  Transmission Date: 20060218
  Serious: Yes (Death, Disabling, Other)
  Sender: FDA-Public Use
  Company Number: 2005085499

PATIENT
  Age: 77 Year
  Sex: Male

DRUGS (1)
  1. DALTEPARIN SODIUM [Suspect]
     Indication: ILL-DEFINED DISORDER
     Dosage: 2000 I.U. (1 D), INTRAVENOUS
     Route: 042

REACTIONS (6)
  - DIPLEGIA [None]
  - EXTRADURAL HAEMATOMA [None]
  - MULTI-ORGAN FAILURE [None]
  - POST PROCEDURAL HAEMATOMA [None]
  - RENAL FAILURE [None]
  - RESPIRATORY FAILURE [None]
